FAERS Safety Report 9508728 (Version 1)
Quarter: 2013Q3

REPORT INFORMATION
  Report Type: Report from Study
  Country: BR (occurrence: BR)
  Receive Date: 20130909
  Receipt Date: 20130909
  Transmission Date: 20140515
  Serious: Yes (Other)
  Sender: FDA-Public Use
  Company Number: ALCN2013BR002986

PATIENT
  Age: 58 Year
  Sex: Female

DRUGS (1)
  1. TRAVATAN [Suspect]
     Indication: INTRAOCULAR PRESSURE INCREASED
     Route: 047

REACTIONS (5)
  - Optic nerve cupping [Not Recovered/Not Resolved]
  - Intraocular pressure increased [Not Recovered/Not Resolved]
  - Ocular hyperaemia [Not Recovered/Not Resolved]
  - Dry eye [Not Recovered/Not Resolved]
  - Eye irritation [Not Recovered/Not Resolved]
